FAERS Safety Report 5572649-4 (Version None)
Quarter: 2007Q4

REPORT INFORMATION
  Report Type: 
  Country: None (occurrence: None)
  Receive Date: 20071222
  Receipt Date: 20071213
  Transmission Date: 20080405
  Serious: Yes (Other)
  Sender: FDA-Public Use
  Company Number: IE-PFIZER INC-2007105310

PATIENT
  Sex: Male

DRUGS (4)
  1. VIAGRA [Suspect]
     Indication: ERECTILE DYSFUNCTION
     Route: 048
  2. CLARITHROMYCIN [Suspect]
     Indication: ULCER
  3. AMOXICILLIN [Suspect]
     Indication: ULCER
  4. OMEPRAZOLE [Suspect]
     Indication: ULCER

REACTIONS (4)
  - CONVULSION [None]
  - HAEMOLYSIS [None]
  - ROAD TRAFFIC ACCIDENT [None]
  - ULCER [None]
